FAERS Safety Report 6080889-3 (Version None)
Quarter: 2009Q1

REPORT INFORMATION
  Report Type: 
  Country: None (occurrence: None)
  Receive Date: 20090217
  Receipt Date: 20090211
  Transmission Date: 20090719
  Serious: Yes (Hospitalization)
  Sender: FDA-Public Use
  Company Number: GB-ABBOTT-09P-167-0503123-00

PATIENT
  Age: 29 Year
  Sex: Female

DRUGS (5)
  1. BRUFEN [Suspect]
     Indication: PLANTAR FASCIITIS
     Dosage: GEL
  2. SPORANOX [Suspect]
     Indication: VULVOVAGINAL CANDIDIASIS
     Dosage: 2 - 100MG CAPSULES EVERY 12 HOURS
     Route: 048
     Dates: start: 20080131
  3. SPORANOX [Suspect]
     Route: 048
     Dates: start: 20080214, end: 20080215
  4. DOXYCYCLINE HYCLATE [Suspect]
     Indication: PELVIC INFLAMMATORY DISEASE
  5. CLOTRIMAZOLE [Suspect]
     Indication: CANDIDIASIS
     Dosage: PESSARY

REACTIONS (7)
  - CAESAREAN SECTION [None]
  - CANDIDIASIS [None]
  - DRUG EXPOSURE DURING PREGNANCY [None]
  - PELVIC PAIN [None]
  - PLANTAR FASCIITIS [None]
  - PREGNANCY [None]
  - PUBIC PAIN [None]
